FAERS Safety Report 5395645-9 (Version None)
Quarter: 2007Q3

REPORT INFORMATION
  Report Type: 
  Country: None (occurrence: None)
  Receive Date: 20070720
  Receipt Date: 20070712
  Transmission Date: 20080115
  Serious: No
  Sender: FDA-Public Use
  Company Number: THQ2007A00577

PATIENT
  Age: 85 Year
  Sex: Female

DRUGS (4)
  1. LANSOPRAZOLE [Suspect]
     Dosage: PER ORAL
     Route: 048
     Dates: start: 20061101
  2. ASPIRIN [Concomitant]
  3. SERETIDE EVOHALER              (SERETIDE /01420901/) [Concomitant]
  4. SIMVASTATIN [Concomitant]

REACTIONS (1)
  - EYE PAIN [None]
